FAERS Safety Report 24002088 (Version 1)
Quarter: 2024Q2

REPORT INFORMATION
  Report Type: Spontaneous
  Country: ES (occurrence: ES)
  Receive Date: 20240622
  Receipt Date: 20240622
  Transmission Date: 20240716
  Serious: Yes (Hospitalization, Other)
  Sender: FDA-Public Use
  Company Number: ES-AEMPS-1533430

PATIENT
  Age: 67 Year
  Sex: Female
  Weight: 56 kg

DRUGS (3)
  1. MYCOPHENOLIC ACID [Interacting]
     Active Substance: MYCOPHENOLIC ACID
     Indication: Renal transplant
     Dosage: 540 MILLIGRAM, TWO TIMES A DAY
     Route: 048
     Dates: start: 202311, end: 20240112
  2. PREDNISOLONE [Interacting]
     Active Substance: PREDNISOLONE
     Indication: Renal transplant
     Dosage: 10 MILLIGRAM, ONCE A DAY
     Route: 048
     Dates: start: 202311, end: 20240112
  3. TACROLIMUS [Interacting]
     Active Substance: TACROLIMUS
     Indication: Renal transplant
     Dosage: 8 MILLIGRAM, ONCE A DAY
     Route: 048
     Dates: start: 202311, end: 20240112

REACTIONS (2)
  - Tuberculosis [Recovered/Resolved]
  - Leishmaniasis [Recovered/Resolved]

NARRATIVE: CASE EVENT DATE: 20240119
